FAERS Safety Report 7810539-4 (Version None)
Quarter: 2011Q4

REPORT INFORMATION
  Report Type: 
  Country: None (occurrence: None)
  Receive Date: 20111013
  Receipt Date: 20111010
  Transmission Date: 20120403
  Serious: Yes (Other)
  Sender: FDA-Public Use
  Company Number: AU-BIOGENIDEC-2011BI033961

PATIENT
  Age: 42 Year
  Sex: Female

DRUGS (4)
  1. FISH OIL [Concomitant]
  2. VITAMIN D [Concomitant]
  3. TYSABRI [Suspect]
     Indication: MULTIPLE SCLEROSIS
     Route: 042
     Dates: start: 20100819, end: 20110624
  4. VITAMIN B COMPLEX CAP [Concomitant]

REACTIONS (1)
  - BREAST CANCER [None]
